FAERS Safety Report 4623843-8 (Version None)
Quarter: 2005Q1

REPORT INFORMATION
  Report Type: 
  Country: None (occurrence: None)
  Receive Date: 20050331
  Receipt Date: 20050322
  Transmission Date: 20050727
  Serious: Yes (Other)
  Sender: FDA-Public Use
  Company Number: 200511054FR

PATIENT
  Age: 38 Year
  Sex: Female

DRUGS (7)
  1. KETEK [Suspect]
     Indication: PHARYNGITIS
     Route: 048
     Dates: start: 20041010, end: 20041010
  2. KETEK [Suspect]
     Indication: RHINITIS
     Route: 048
     Dates: start: 20041010, end: 20041010
  3. KETEK [Suspect]
     Indication: SINUSITIS
     Route: 048
     Dates: start: 20041010, end: 20041010
  4. LEVOTHYROX [Concomitant]
  5. ADVIL [Concomitant]
     Indication: PHARYNGITIS
     Dates: start: 20041010
  6. ADVIL [Concomitant]
     Indication: RHINITIS
     Dates: start: 20041010
  7. MUCOLYTICS [Concomitant]
     Indication: SINUSITIS
     Dates: start: 20041010

REACTIONS (5)
  - DYSPHONIA [None]
  - FATIGUE [None]
  - FEELING DRUNK [None]
  - INFECTION [None]
  - MYASTHENIA GRAVIS [None]
